FAERS Safety Report 18564709 (Version 7)
Quarter: 2021Q2

REPORT INFORMATION
  Report Type: Report from Study
  Country: US (occurrence: US)
  Receive Date: 20201201
  Receipt Date: 20210610
  Transmission Date: 20210717
  Serious: No
  Sender: FDA-Public Use
  Company Number: NVSC2020US313529

PATIENT
  Age: 60 Year
  Sex: Female

DRUGS (1)
  1. GLATOPA [Suspect]
     Active Substance: GLATIRAMER ACETATE
     Indication: PRODUCT USED FOR UNKNOWN INDICATION
     Dosage: 20 MG, QD
     Route: 058
     Dates: start: 20201026

REACTIONS (5)
  - Device defective [Unknown]
  - Wrong technique in device usage process [Unknown]
  - Diarrhoea [Unknown]
  - Injection site mass [Recovered/Resolved]
  - Device mechanical issue [Unknown]

NARRATIVE: CASE EVENT DATE: 20201120
